FAERS Safety Report 7903273-3 (Version None)
Quarter: 2011Q4

REPORT INFORMATION
  Report Type: 
  Country: None (occurrence: None)
  Receive Date: 20111109
  Receipt Date: 20111102
  Transmission Date: 20120403
  Serious: Yes (Other)
  Sender: FDA-Public Use
  Company Number: JP-ASTELLAS-2011JP006450

PATIENT
  Age: 94 Year
  Sex: Male

DRUGS (8)
  1. FUNGUARD [Suspect]
     Dosage: 100 MG, UNKNOWN/D
     Route: 041
     Dates: start: 20110905, end: 20110911
  2. FULCALIQ [Concomitant]
     Dosage: 2006 ML, UNKNOWN/D
     Route: 050
     Dates: end: 20110911
  3. VANCOMYCIN [Suspect]
     Dosage: 750 MG, UNKNOWN/D
     Route: 041
     Dates: start: 20110902, end: 20110908
  4. PASIL [Concomitant]
     Dosage: 1000 MG, UNKNOWN/D
     Route: 041
     Dates: start: 20110907, end: 20110911
  5. CLINDAMYCIN [Concomitant]
     Dosage: 600 MG, UNKNOWN/D
     Route: 041
     Dates: start: 20110907, end: 20110911
  6. LASIX [Concomitant]
     Dosage: 20 MG, UNKNOWN/D
     Route: 042
     Dates: start: 20110905, end: 20110905
  7. ZOSYN [Concomitant]
     Dosage: 9 G, UNKNOWN/D
     Route: 041
     Dates: start: 20110905, end: 20110906
  8. FAMOTIDINE [Suspect]
     Dosage: 20 MG, UNKNOWN/D
     Route: 065
     Dates: start: 20110830, end: 20110911

REACTIONS (1)
  - PLATELET COUNT DECREASED [None]
